FAERS Safety Report 5698707-1 (Version None)
Quarter: 2008Q2

REPORT INFORMATION
  Report Type: 
  Country: None (occurrence: None)
  Receive Date: 20080408
  Receipt Date: 20070404
  Transmission Date: 20081010
  Serious: No
  Sender: FDA-Public Use
  Company Number: US-BAYER-US-2007-011971

PATIENT
  Age: 50 Year
  Sex: Female

DRUGS (3)
  1. CLIMARA [Suspect]
     Indication: MENOPAUSAL SYMPTOMS PROPHYLAXIS
     Route: 062
     Dates: start: 20060801
  2. SPIRIVA [Concomitant]
  3. TOPROL-XL [Concomitant]
     Route: 048

REACTIONS (1)
  - APPLICATION SITE RASH [None]
